FAERS Safety Report 5754405-7 (Version None)
Quarter: 2008Q2

REPORT INFORMATION
  Report Type: 
  Country: None (occurrence: None)
  Receive Date: 20080530
  Receipt Date: 20080522
  Transmission Date: 20081010
  Serious: Yes (Hospitalization)
  Sender: FDA-Public Use
  Company Number: US-ABBOTT-08P-163-0452996-00

PATIENT
  Sex: Female
  Weight: 76.59 kg

DRUGS (1)
  1. SYNTHROID [Suspect]
     Indication: HYPOTHYROIDISM
     Route: 048

REACTIONS (19)
  - AMNESIA [None]
  - ANXIETY [None]
  - CHILLS [None]
  - CONSTIPATION [None]
  - DIARRHOEA [None]
  - DIZZINESS [None]
  - EYE PAIN [None]
  - FATIGUE [None]
  - HEART RATE IRREGULAR [None]
  - INSOMNIA [None]
  - LIBIDO DECREASED [None]
  - MANIA [None]
  - MOOD SWINGS [None]
  - PALPITATIONS [None]
  - POLLAKIURIA [None]
  - SKIN LESION [None]
  - TEMPERATURE INTOLERANCE [None]
  - TINNITUS [None]
  - WEIGHT ABNORMAL [None]
